FAERS Safety Report 16050815 (Version 2)
Quarter: 2019Q2

REPORT INFORMATION
  Report Type: Spontaneous
  Country: US (occurrence: US)
  Receive Date: 20190308
  Receipt Date: 20190425
  Transmission Date: 20190711
  Serious: No
  Sender: FDA-Public Use
  Company Number: US-PFIZER INC-2019089737

PATIENT
  Sex: Male

DRUGS (1)
  1. REVATIO [Suspect]
     Active Substance: SILDENAFIL CITRATE
     Indication: ERECTILE DYSFUNCTION
     Dosage: 60 MG, AS NEEDED (THREE TABLETS OF 20 MG ONE HOUR BEFORE SEXUAL INTERCOURSE)

REACTIONS (4)
  - Vision blurred [Unknown]
  - Product use in unapproved indication [Unknown]
  - Headache [Unknown]
  - Hot flush [Unknown]
